FAERS Safety Report 5190307-5 (Version None)
Quarter: 2006Q4

REPORT INFORMATION
  Report Type: 
  Country: None (occurrence: None)
  Receive Date: 20061222
  Receipt Date: 20060821
  Transmission Date: 20070319
  Serious: Yes (Hospitalization)
  Sender: FDA-Public Use
  Company Number: 2006UW16606

PATIENT
  Age: 77 Year
  Sex: Female

DRUGS (9)
  1. SYMBICORT [Suspect]
     Indication: ASTHMA
     Dosage: TWO PUFFS BID
     Route: 055
     Dates: start: 20050501
  2. BRICANYL [Concomitant]
     Indication: ASTHMA
  3. FOSAMAX [Concomitant]
     Indication: OSTEOPOROSIS
  4. PREDNISONE TAB [Concomitant]
  5. CALCIUM [Concomitant]
  6. VITAMIN D [Concomitant]
  7. LIPITOR [Concomitant]
  8. BAYCOL [Concomitant]
  9. PREDNISONE TAB [Concomitant]
     Indication: EOSINOPHILIC PNEUMONIA

REACTIONS (2)
  - HAEMORRHAGE [None]
  - MUSCLE SPASMS [None]
